FAERS Safety Report 8953948 (Version 2)
Quarter: 2013Q1

REPORT INFORMATION
  Report Type: Spontaneous
  Country: US (occurrence: US)
  Receive Date: 20121206
  Receipt Date: 20130103
  Transmission Date: 20140127
  Serious: Yes (Hospitalization)
  Sender: FDA-Public Use
  Company Number: US-009507513-1212USA001852

PATIENT
  Sex: Female

DRUGS (3)
  1. PEGINTRON [Suspect]
     Dosage: UNK
     Dates: start: 201208
  2. TELAPREVIR [Suspect]
     Dosage: UNK
  3. RIBAPAK [Suspect]
     Dosage: UNK

REACTIONS (1)
  - Adverse event [Unknown]
